FAERS Safety Report 24411020 (Version 1)
Quarter: 2024Q4

REPORT INFORMATION
  Report Type: Other
  Country: SG (occurrence: SG)
  Receive Date: 20241008
  Receipt Date: 20241008
  Transmission Date: 20250115
  Serious: Yes (Hospitalization)
  Sender: B BRAUN
  Company Number: SG-B.Braun Medical Inc.-2162636

PATIENT
  Age: 50 Year
  Sex: Female

DRUGS (4)
  1. CEFTAZIDIME [Suspect]
     Active Substance: CEFTAZIDIME
     Indication: Necrotising fasciitis
  2. PENICILLIN G [Suspect]
     Active Substance: PENICILLIN G
  3. Herbal traditional Chinese medicine [Concomitant]
  4. CLINDAMYCIN [Suspect]
     Active Substance: CLINDAMYCIN

REACTIONS (1)
  - Drug ineffective [Unknown]
